FAERS Safety Report 24908689 (Version 1)
Quarter: 2025Q1

REPORT INFORMATION
  Report Type: Spontaneous
  Country: US (occurrence: US)
  Receive Date: 20250131
  Receipt Date: 20250131
  Transmission Date: 20250408
  Serious: No
  Sender: ROCHE
  Company Number: US-ROCHE-10000191165

PATIENT
  Sex: Male

DRUGS (1)
  1. OCREVUS [Suspect]
     Active Substance: OCRELIZUMAB
     Indication: Multiple sclerosis
     Dosage: STRENGTH: 300 MG/ 10 ML.
     Route: 040
     Dates: start: 202407

REACTIONS (4)
  - Depressed level of consciousness [Recovering/Resolving]
  - Loss of personal independence in daily activities [Recovering/Resolving]
  - Ill-defined disorder [Recovering/Resolving]
  - Disturbance in attention [Recovering/Resolving]
